FAERS Safety Report 23942003 (Version 1)
Quarter: 2024Q2

REPORT INFORMATION
  Report Type: Spontaneous
  Country: US (occurrence: None)
  Receive Date: 20240604
  Receipt Date: 20240604
  Transmission Date: 20240716
  Serious: Yes (unspecified)
  Sender: FDA-Public Use
  Company Number: None

PATIENT
  Age: 47 Year
  Sex: Male
  Weight: 150.75 kg

DRUGS (3)
  1. .DELTA.8-TETRAHYDROCANNABINOL\HERBALS [Suspect]
     Active Substance: .DELTA.8-TETRAHYDROCANNABINOL\HERBALS
     Indication: Drug diversion
     Dosage: OTHER QUANTITY : 2 GUMMIES;?OTHER FREQUENCY : ONCE;?
     Route: 048
  2. no e [Concomitant]
  3. ASPIRIN [Concomitant]
     Active Substance: ASPIRIN

REACTIONS (7)
  - Nausea [None]
  - Vomiting [None]
  - Fine motor skill dysfunction [None]
  - Dysarthria [None]
  - Confusional state [None]
  - Unresponsive to stimuli [None]
  - Memory impairment [None]

NARRATIVE: CASE EVENT DATE: 20240604
